FAERS Safety Report 5326862-1 (Version None)
Quarter: 2007Q2

REPORT INFORMATION
  Report Type: 
  Country: None (occurrence: None)
  Receive Date: 20070511
  Receipt Date: 20070501
  Transmission Date: 20071010
  Serious: Yes (Hospitalization)
  Sender: FDA-Public Use
  Company Number: 155882ISR

PATIENT
  Age: 18 Year
  Sex: Male

DRUGS (3)
  1. CISPLATIN [Suspect]
     Indication: TESTIS CANCER
     Dosage: (20 MG/M2)
     Route: 041
  2. ETOPOSIDE [Suspect]
     Dosage: (100 MG/M2)
     Route: 041
  3. BLEOMYCIN [Suspect]
     Dosage: (30 IU)

REACTIONS (6)
  - DEEP VEIN THROMBOSIS [None]
  - HAEMODIALYSIS [None]
  - OEDEMA PERIPHERAL [None]
  - PAIN IN EXTREMITY [None]
  - RENAL FAILURE ACUTE [None]
  - RENAL VEIN THROMBOSIS [None]
